FAERS Safety Report 22269373 (Version 1)
Quarter: 2023Q2

REPORT INFORMATION
  Report Type: Spontaneous
  Country: US (occurrence: None)
  Receive Date: 20230430
  Receipt Date: 20230430
  Transmission Date: 20230721
  Serious: Yes (Death)
  Sender: FDA-Public Use
  Company Number: None

PATIENT
  Age: 93 Year
  Sex: Female

DRUGS (7)
  1. PROLIA [Suspect]
     Active Substance: DENOSUMAB
     Dosage: OTHER FREQUENCY : EVERY 6 MONTHS;?
     Route: 058
     Dates: start: 20201215
  2. PROLIA [Suspect]
     Active Substance: DENOSUMAB
     Dosage: OTHER QUANTITY : 1 SYRINGE;?OTHER FREQUENCY : EVERY 6 MONTHS;?
     Route: 058
  3. CELEBREX [Concomitant]
     Active Substance: CELECOXIB
  4. GABAPENTIN [Concomitant]
  5. LEVOTHYROXIN [Concomitant]
  6. NORVASC [Concomitant]
     Active Substance: AMLODIPINE BESYLATE
  7. PANTOPRAZOLE [Concomitant]

REACTIONS (1)
  - Death [None]

NARRATIVE: CASE EVENT DATE: 20221116
